FAERS Safety Report 23765663 (Version 1)
Quarter: 2024Q2

REPORT INFORMATION
  Report Type: Spontaneous
  Country: US (occurrence: US)
  Receive Date: 20240421
  Receipt Date: 20240421
  Transmission Date: 20240716
  Serious: Yes (Other)
  Sender: FDA-Public Use
  Company Number: US-SANOFI-02014185

PATIENT
  Age: 77 Year
  Sex: Male

DRUGS (1)
  1. MULTAQ [Suspect]
     Active Substance: DRONEDARONE
     Indication: Atrial fibrillation
     Dosage: 400 MG BID
     Route: 048
     Dates: start: 20230105

REACTIONS (2)
  - Blindness unilateral [Unknown]
  - Ocular hyperaemia [Unknown]
